FAERS Safety Report 18505359 (Version 1)
Quarter: 2020Q4

REPORT INFORMATION
  Report Type: Spontaneous
  Country: US (occurrence: US)
  Receive Date: 20201116
  Receipt Date: 20201116
  Transmission Date: 20210114
  Serious: Yes (Death, Life-Threatening, Hospitalization, Other)
  Sender: FDA-Public Use
  Company Number: US-HIKMA PHARMACEUTICALS USA INC.-US-H14001-20-52601

PATIENT
  Age: 43 Year
  Sex: Female

DRUGS (6)
  1. PREDNISONE. [Suspect]
     Active Substance: PREDNISONE
     Indication: IMMUNOSUPPRESSANT DRUG THERAPY
     Route: 065
  2. MYCOPHENOLATE MOFETIL. [Suspect]
     Active Substance: MYCOPHENOLATE MOFETIL
     Indication: IMMUNOSUPPRESSANT DRUG THERAPY
     Route: 065
  3. PREDNISONE. [Suspect]
     Active Substance: PREDNISONE
     Dosage: UNKNOWN
     Route: 065
  4. BELATACEPT [Concomitant]
     Active Substance: BELATACEPT
     Indication: IMMUNOSUPPRESSANT DRUG THERAPY
     Route: 065
  5. PREDNISONE. [Suspect]
     Active Substance: PREDNISONE
     Route: 065
  6. MYCOPHENOLATE MOFETIL. [Suspect]
     Active Substance: MYCOPHENOLATE MOFETIL
     Dosage: REDUCED BY HALF
     Route: 065

REACTIONS (15)
  - Pneumocystis jirovecii pneumonia [Fatal]
  - Herpes simplex [Fatal]
  - Meningitis cryptococcal [Fatal]
  - Respiratory failure [Fatal]
  - Septic shock [Fatal]
  - Herpes simplex meningitis [Fatal]
  - Infective myositis [Fatal]
  - Klebsiella infection [Fatal]
  - Multiple organ dysfunction syndrome [Fatal]
  - Disseminated cryptococcosis [Fatal]
  - Pseudomonas infection [Fatal]
  - Pneumothorax [Fatal]
  - Genital herpes simplex [Fatal]
  - Cryptococcosis [Fatal]
  - Cyst rupture [Fatal]
